FAERS Safety Report 16003971 (Version 1)
Quarter: 2019Q1

REPORT INFORMATION
  Report Type: Report from Study
  Country: IE (occurrence: IE)
  Receive Date: 20190226
  Receipt Date: 20190226
  Transmission Date: 20190418
  Serious: Yes (Hospitalization)
  Sender: FDA-Public Use
  Company Number: IE-AMGEN-IRLSL2019030141

PATIENT
  Age: 43 Year
  Sex: Male

DRUGS (7)
  1. NEULASTA [Suspect]
     Active Substance: PEGFILGRASTIM
     Indication: PRODUCT USED FOR UNKNOWN INDICATION
     Dosage: 6 MG, AS PER CHEMO PRESCRIPTION
     Route: 058
     Dates: end: 20190201
  2. DELTACORTRIL [Concomitant]
     Active Substance: PREDNISOLONE
     Dosage: 40 MG, AS PER CHEMO PRESCRIPTION
     Route: 050
  3. VALACICLOVIR [Concomitant]
     Active Substance: VALACYCLOVIR HYDROCHLORIDE
     Dosage: 500 MG, AS PER CHEMO PRESCRIPTION
     Route: 050
  4. SEPTRIN [Concomitant]
     Active Substance: SULFAMETHOXAZOLE\TRIMETHOPRIM
     Dosage: 160 MG, QOD
     Route: 050
  5. PROCARBAZINE [Concomitant]
     Active Substance: PROCARBAZINE
     Dosage: 50 MG, AS PER CHEMO PRESCRIPTION
     Route: 050
  6. LANSOPRAZOLE. [Concomitant]
     Active Substance: LANSOPRAZOLE
     Dosage: 30 MG, QD
     Route: 050
  7. DOMERID [Concomitant]
     Dosage: 10 MG, AS PER CHEMO PRESCRIPTION
     Route: 050

REACTIONS (2)
  - Back pain [Recovered/Resolved]
  - Arthralgia [Recovered/Resolved]

NARRATIVE: CASE EVENT DATE: 20190203
